FAERS Safety Report 6807281-5 (Version None)
Quarter: 2010Q2

REPORT INFORMATION
  Report Type: 
  Country: None (occurrence: None)
  Receive Date: 20100628
  Receipt Date: 20100628
  Transmission Date: 20101027
  Serious: Yes (Life-Threatening)
  Sender: FDA-Public Use
  Company Number: None

PATIENT
  Sex: Female

DRUGS (1)
  1. PROPOFOL [Suspect]
     Indication: ENDOSCOPY
     Dosage: 200 MG ONCE IV ; ONE TIME
     Route: 042

REACTIONS (6)
  - CARDIAC DISORDER [None]
  - CHEST DISCOMFORT [None]
  - COUGH [None]
  - DRUG HYPERSENSITIVITY [None]
  - DYSPNOEA [None]
  - RESPIRATORY DISORDER [None]
